FAERS Safety Report 18522801 (Version 2)
Quarter: 2021Q1

REPORT INFORMATION
  Report Type: Spontaneous
  Country: DE (occurrence: DE)
  Receive Date: 20201119
  Receipt Date: 20210224
  Transmission Date: 20210419
  Serious: Yes (Other)
  Sender: FDA-Public Use
  Company Number: DE-BIOGEN-2020BI00947915

PATIENT
  Sex: Female

DRUGS (3)
  1. TYSABRI [Suspect]
     Active Substance: NATALIZUMAB
     Indication: RELAPSING-REMITTING MULTIPLE SCLEROSIS
     Route: 042
     Dates: start: 20111115, end: 20120221
  2. PROGESTERON [Concomitant]
     Active Substance: PROGESTERONE
     Indication: INFERTILITY
     Route: 065
     Dates: start: 20110715
  3. GONAL?F [Concomitant]
     Active Substance: FOLLITROPIN
     Indication: INFERTILITY
     Route: 065
     Dates: start: 20110615

REACTIONS (2)
  - Abortion spontaneous [Recovered/Resolved]
  - Maternal exposure during pregnancy [Recovered/Resolved]

NARRATIVE: CASE EVENT DATE: 20120316
